FAERS Safety Report 18166558 (Version 1)
Quarter: 2020Q3

REPORT INFORMATION
  Report Type: Spontaneous
  Country: GB (occurrence: GB)
  Receive Date: 20200819
  Receipt Date: 20200819
  Transmission Date: 20201103
  Serious: Yes (Life-Threatening, Hospitalization)
  Sender: FDA-Public Use
  Company Number: GB-TEVA-2020-GB-1815024

PATIENT
  Age: 32 Year
  Sex: Male

DRUGS (3)
  1. MODAFINIL. [Suspect]
     Active Substance: MODAFINIL
     Dosage: ESTIMATED QUANTITY OF DRUG WAS MORE THAN 600MG; HE HAD INSUFFLATED A LARGE AMOUNT OF MODAFINIL
     Route: 065
  2. D?MANNOSE [DIETARY SUPPLEMENT] [Suspect]
     Active Substance: DIETARY SUPPLEMENT
     Indication: URINARY TRACT INFECTION
     Route: 065
  3. METHYLPHENIDATE. [Suspect]
     Active Substance: METHYLPHENIDATE
     Indication: PRODUCT USED FOR UNKNOWN INDICATION
     Dosage: ESTIMATED QUANTITY OF LESS THAN 200MG
     Route: 065

REACTIONS (9)
  - Loss of consciousness [Recovered/Resolved]
  - Hypovolaemia [Recovered/Resolved]
  - Brain oedema [Recovered/Resolved]
  - Amnesia [Recovered/Resolved]
  - Pneumonia aspiration [Recovered/Resolved]
  - Overdose [Unknown]
  - Hyponatraemia [Recovered/Resolved]
  - Vomiting [Recovered/Resolved]
  - Cognitive disorder [Recovered/Resolved]
